FAERS Safety Report 19399264 (Version 1)
Quarter: 2021Q2

REPORT INFORMATION
  Report Type: Report from Study
  Country: AT (occurrence: AT)
  Receive Date: 20210610
  Receipt Date: 20210610
  Transmission Date: 20210717
  Serious: Yes (Hospitalization)
  Sender: FDA-Public Use
  Company Number: AT-MYLANLABS-2021M1033804

PATIENT
  Age: 54 Year
  Sex: Female
  Weight: 75 kg

DRUGS (20)
  1. NERATINIB [Suspect]
     Active Substance: NERATINIB
     Indication: BREAST CANCER
     Dosage: 1440 MILLIGRAM, QD, MOST RECENT DOSE ON 18/JAN/2020
     Route: 048
     Dates: start: 20200108
  2. METHOTREXATE. [Suspect]
     Active Substance: METHOTREXATE
     Indication: BREAST CANCER
     Dosage: 2.5 MILLIGRAM, MOST RECENT DOSE ON 09/MAR/2020
     Route: 048
     Dates: start: 20200219
  3. TRASTUZUMAB. [Suspect]
     Active Substance: TRASTUZUMAB
     Dosage: 600 MILLIGRAM, Q3W, MOST RECENT DOSE PRIOR TO THE EVENT: 19/FEB/2020
     Route: 042
     Dates: start: 20180328
  4. PACLITAXEL. [Suspect]
     Active Substance: PACLITAXEL
     Indication: BREAST CANCER
     Dosage: 177.17 MILLIGRAM, QW, MOST RECENT DOSE PRIOR TO AE 07/DEC/2018
     Route: 042
     Dates: start: 20180416
  5. PERTUZUMAB. [Suspect]
     Active Substance: PERTUZUMAB
     Indication: BREAST CANCER
     Dosage: 840 MILLIGRAM, Q3W, MOST RECENT DOSE PRIOR TO THE EVENT: 23/APR/2018
     Route: 042
     Dates: start: 20180328
  6. OCTENISEPT                         /06269102/ [Concomitant]
     Indication: ONYCHOLYSIS
     Dosage: UNK, ONGOING = NOT CHECKED
     Dates: start: 20180725
  7. PANTOLOC                           /01263201/ [Concomitant]
     Active Substance: PANTOPRAZOLE SODIUM
     Dosage: UNK, ONGOING = NOT CHECKED
     Dates: start: 20191011, end: 20200410
  8. TRASTUZUMAB. [Suspect]
     Active Substance: TRASTUZUMAB
     Indication: BREAST CANCER
     Dosage: 600 MILLIGRAM, Q3W, MOST RECENT DOSE PRIOR TO THE EVENT: 19/FEB/2020
     Route: 042
     Dates: start: 20180328, end: 20180328
  9. PACLITAXEL. [Suspect]
     Active Substance: PACLITAXEL
     Dosage: 147.76 MILLIGRAM, QW, MOST RECENT DOSE ON 09/APR/2018
     Route: 042
     Dates: start: 20180328
  10. HYDAL [Concomitant]
     Active Substance: HYDROMORPHONE HYDROCHLORIDE
     Dosage: UNK, ONGOING = NOT CHECKED
     Dates: start: 20200228, end: 20200311
  11. HYDAL [Concomitant]
     Active Substance: HYDROMORPHONE HYDROCHLORIDE
     Dosage: UNK, ONGOING = NOT CHECKED
     Dates: start: 20200311, end: 20200410
  12. CYCLOPHOSPHAMIDE. [Suspect]
     Active Substance: CYCLOPHOSPHAMIDE
     Indication: BREAST CANCER
     Dosage: 50 MILLIGRAM, QD, MOST RECENT DOSE ON 09/MAR/2020
     Route: 048
     Dates: start: 20200219
  13. TRASTUZUMAB EMTANSINE [Suspect]
     Active Substance: ADO-TRASTUZUMAB EMTANSINE
     Indication: BREAST CANCER
     Dosage: 230.4 MILLIGRAM, Q3W, MOST RECENT DOSE PRIOR TO THE EVENT: 28/JUN/2019
     Route: 042
     Dates: start: 20190131
  14. CAL D VITA [Concomitant]
     Dosage: UNK, ONGOING = NOT CHECKED
     Dates: start: 20190425
  15. BEPANTHENE [Concomitant]
     Active Substance: DEXPANTHENOL
     Indication: CONJUNCTIVITIS
     Dosage: UNK, ONGOING = NOT CHECKED
     Dates: start: 20180619
  16. ZOFRAN [Concomitant]
     Active Substance: ONDANSETRON HYDROCHLORIDE
     Dosage: UNK, ONGOING = NOT CHECKED
     Dates: start: 20200309, end: 20200410
  17. XGEVA [Concomitant]
     Active Substance: DENOSUMAB
     Dosage: UNK, ONGOING = NOT CHECKED
     Dates: start: 20191219, end: 20200410
  18. CAPECITABINE. [Suspect]
     Active Substance: CAPECITABINE
     Indication: BREAST CANCER
     Dosage: 500 MILLIGRAM, FREQUENCY: OTHER MOST RECENT DOSE PRIOR TO THE EVENT: 19/DEC/2019
     Route: 048
     Dates: start: 20191126
  19. NOVALGINA [Concomitant]
     Active Substance: METAMIZOLE SODIUM
     Dosage: UNK, ONGOING = NOT CHECKED
     Dates: start: 20200224, end: 20200410
  20. HYDAL [Concomitant]
     Active Substance: HYDROMORPHONE HYDROCHLORIDE
     Dosage: UNK, ONGOING = NOT CHECKED
     Dates: start: 20200228, end: 20200410

REACTIONS (2)
  - C-reactive protein increased [Recovered/Resolved]
  - Dyspnoea [Recovered/Resolved]

NARRATIVE: CASE EVENT DATE: 20200309
